FAERS Safety Report 4852878-5 (Version None)
Quarter: 2005Q4

REPORT INFORMATION
  Report Type: 
  Country: None (occurrence: None)
  Receive Date: 20051214
  Receipt Date: 20051206
  Transmission Date: 20060501
  Serious: Yes (Hospitalization)
  Sender: FDA-Public Use
  Company Number: 2005CG02021

PATIENT
  Age: 43 Year
  Sex: Male

DRUGS (16)
  1. NEXIUM [Suspect]
     Route: 048
     Dates: start: 20051028, end: 20051030
  2. MOPRAL [Suspect]
     Route: 042
     Dates: start: 20051029, end: 20051029
  3. PROFENID [Suspect]
     Route: 042
     Dates: start: 20051028, end: 20051028
  4. SPASFON [Suspect]
     Route: 042
     Dates: start: 20051029, end: 20051029
  5. PERFALGAN [Concomitant]
     Route: 042
     Dates: start: 20051028, end: 20051108
  6. SKENAN [Concomitant]
     Dates: start: 20051028
  7. MYOLASTAN [Concomitant]
     Dates: start: 20051028
  8. MORPHINE SULFATE [Concomitant]
     Dates: start: 20051028
  9. LOVENOX [Concomitant]
     Dates: start: 20051028, end: 20051031
  10. GENTAMICIN [Concomitant]
     Indication: SEPTIC SHOCK
     Dates: start: 20051029, end: 20051107
  11. GENTAMICIN [Concomitant]
     Indication: STAPHYLOCOCCAL SEPSIS
     Dates: start: 20051029, end: 20051107
  12. ORBENINE [Concomitant]
     Indication: SEPTIC SHOCK
     Dates: start: 20051029
  13. ORBENINE [Concomitant]
     Indication: STAPHYLOCOCCAL SEPSIS
     Dates: start: 20051029
  14. PRIMPERAN INJ [Concomitant]
     Dates: start: 20051029
  15. OXYCONTIN [Concomitant]
     Dates: start: 20051030, end: 20051102
  16. OXYNORM [Concomitant]
     Dates: start: 20051030, end: 20051101

REACTIONS (1)
  - PANCYTOPENIA [None]
